FAERS Safety Report 11663577 (Version 1)
Quarter: 2015Q4

REPORT INFORMATION
  Report Type: Spontaneous
  Country: US (occurrence: US)
  Receive Date: 20151027
  Receipt Date: 20151027
  Transmission Date: 20160304
  Serious: No
  Sender: FDA-Public Use
  Company Number: US-DRREDDYS-USA/USA/15/0046702

PATIENT
  Age: 39 Year
  Sex: Male
  Weight: 122.47 kg

DRUGS (2)
  1. RANITIDINE [Suspect]
     Active Substance: RANITIDINE\RANITIDINE HYDROCHLORIDE
     Indication: HYPERSENSITIVITY
     Route: 048
     Dates: end: 20150301
  2. ALEVE [Concomitant]
     Active Substance: NAPROXEN SODIUM
     Indication: PAIN
     Route: 065

REACTIONS (1)
  - Drug screen positive [Unknown]

NARRATIVE: CASE EVENT DATE: 20150316
